FAERS Safety Report 9280884 (Version 1)
Quarter: 2013Q2

REPORT INFORMATION
  Report Type: Spontaneous
  Country: US (occurrence: None)
  Receive Date: 20130508
  Receipt Date: 20130508
  Transmission Date: 20140414
  Serious: No
  Sender: FDA-Public Use
  Company Number: None

PATIENT
  Age: 21 Year
  Sex: Male

DRUGS (2)
  1. RISPERIDONE [Suspect]
     Dosage: RISPERIDONE 3MG EVERY MORNING PO
     Route: 048
  2. RISPERIDONE [Suspect]
     Dosage: RISPERIDONE 4MG AT BEDTIME PO
     Route: 048

REACTIONS (1)
  - Blood prolactin increased [None]
